FAERS Safety Report 24953695 (Version 1)
Quarter: 2025Q1

REPORT INFORMATION
  Report Type: Spontaneous
  Country: DE (occurrence: DE)
  Receive Date: 20250211
  Receipt Date: 20250211
  Transmission Date: 20250409
  Serious: Yes (Other)
  Sender: UCB
  Company Number: DE-UCBSA-2025007250

PATIENT
  Age: 35 Year
  Sex: Male

DRUGS (9)
  1. BRIVIACT [Suspect]
     Active Substance: BRIVARACETAM
     Indication: Lennox-Gastaut syndrome
     Dates: start: 201706
  2. BRIVIACT [Suspect]
     Active Substance: BRIVARACETAM
     Indication: Product use in unapproved indication
     Dosage: 300 MILLIGRAM, ONCE DAILY (QD)
     Dates: end: 2021
  3. LAMOTRIGINE [Concomitant]
     Active Substance: LAMOTRIGINE
     Indication: Seizure
     Dosage: 450 MILLIGRAM, ONCE DAILY (QD)
  4. LAMOTRIGINE [Concomitant]
     Active Substance: LAMOTRIGINE
     Dosage: 425 MILLIGRAM, ONCE DAILY (QD)
     Dates: start: 201808
  5. VALPROIC ACID [Concomitant]
     Active Substance: VALPROIC ACID
     Indication: Seizure
  6. RIFAMPIN [Concomitant]
     Active Substance: RIFAMPIN
     Indication: Seizure
     Dates: start: 2019
  7. CLOBAZAM [Concomitant]
     Active Substance: CLOBAZAM
     Indication: Seizure
     Dates: start: 2019
  8. EPIDIOLEX [Concomitant]
     Active Substance: CANNABIDIOL
     Indication: Seizure
     Dates: start: 2020, end: 2021
  9. CENOBAMATE [Concomitant]
     Active Substance: CENOBAMATE
     Indication: Seizure
     Dates: start: 202105

REACTIONS (3)
  - Seizure [Unknown]
  - Fall [Unknown]
  - Off label use [Unknown]
